FAERS Safety Report 11647750 (Version 1)
Quarter: 2015Q4

REPORT INFORMATION
  Report Type: Spontaneous
  Country: ES (occurrence: ES)
  Receive Date: 20151021
  Receipt Date: 20151021
  Transmission Date: 20160304
  Serious: Yes (Death, Other)
  Sender: FDA-Public Use
  Company Number: ES-CIPLA LTD.-2015ES07991

PATIENT

DRUGS (3)
  1. EPIRUBICIN [Suspect]
     Active Substance: EPIRUBICIN
     Indication: BREAST CANCER
     Dosage: 90 MG/M2, BID, FIRST CYCLE, ON DAY 1 EVERY 3 WEEKS
     Route: 065
  2. CAPEGARD [Suspect]
     Active Substance: CAPECITABINE
     Indication: BREAST CANCER
     Dosage: 1250 MG/M2, BID, FIRST CYCLE, ON DAYS 1 TO 14
     Route: 065
  3. DOCETAXEL. [Suspect]
     Active Substance: DOCETAXEL
     Indication: BREAST CANCER
     Dosage: 75 MG/M2, BID, FIRST CYCLE, ON DAY 1 EVERY 3 WEEKS
     Route: 065

REACTIONS (7)
  - Leukopenia [Unknown]
  - Mucosal inflammation [Unknown]
  - Neutropenia [Unknown]
  - Lymphopenia [Unknown]
  - Thrombocytopenia [Unknown]
  - Sepsis [Fatal]
  - Palmar-plantar erythrodysaesthesia syndrome [Unknown]
